FAERS Safety Report 5132994-3 (Version None)
Quarter: 2006Q4

REPORT INFORMATION
  Report Type: 
  Country: None (occurrence: None)
  Receive Date: 20061018
  Receipt Date: 20061009
  Transmission Date: 20070319
  Serious: Yes (Hospitalization)
  Sender: FDA-Public Use
  Company Number: 148497ISR

PATIENT
  Age: 18 Year
  Sex: Female

DRUGS (2)
  1. METRONIDAZOLE [Suspect]
  2. CEFUROXIME AXETIL [Suspect]

REACTIONS (5)
  - ABORTION SPONTANEOUS [None]
  - ACUTE RESPIRATORY DISTRESS SYNDROME [None]
  - APPENDICECTOMY [None]
  - DRUG EXPOSURE DURING PREGNANCY [None]
  - PROCEDURAL COMPLICATION [None]
